FAERS Safety Report 9490839 (Version 2)
Quarter: 2013Q3

REPORT INFORMATION
  Report Type: Spontaneous
  Country: US (occurrence: US)
  Receive Date: 20130830
  Receipt Date: 20130830
  Transmission Date: 20140515
  Serious: Yes (Other)
  Sender: FDA-Public Use
  Company Number: US-JNJFOC-20091101726

PATIENT
  Sex: Female

DRUGS (2)
  1. LEVAQUIN [Suspect]
     Indication: BACTERIAL INFECTION
     Route: 048
  2. STEROIDS NOS [Suspect]
     Indication: PAIN
     Route: 042

REACTIONS (6)
  - Tendon injury [Unknown]
  - Bladder disorder [Unknown]
  - Rash [Unknown]
  - Arthralgia [Unknown]
  - Tendonitis [Unknown]
  - Gastric disorder [Unknown]
